FAERS Safety Report 7118125-9 (Version None)
Quarter: 2010Q4

REPORT INFORMATION
  Report Type: 
  Country: None (occurrence: None)
  Receive Date: 20101123
  Receipt Date: 20101117
  Transmission Date: 20110411
  Serious: No
  Sender: FDA-Public Use
  Company Number: US-PFIZER INC-2010151892

PATIENT
  Age: 76 Year
  Sex: Female
  Weight: 56.9 kg

DRUGS (7)
  1. XANAX [Suspect]
     Dosage: UNK
  2. LUNESTA [Suspect]
     Indication: INSOMNIA
     Dosage: UNK
  3. CLONIDINE [Concomitant]
     Dosage: UNK
  4. NORVASC [Concomitant]
     Dosage: UNK
  5. THYROID [Concomitant]
     Dosage: UNK
  6. NEXIUM [Concomitant]
     Dosage: UNK
  7. MELATONIN [Concomitant]
     Dosage: UNK

REACTIONS (3)
  - ANXIETY [None]
  - DRY MOUTH [None]
  - INSOMNIA [None]
